FAERS Safety Report 19053139 (Version 1)
Quarter: 2021Q1

REPORT INFORMATION
  Report Type: Spontaneous
  Country: US (occurrence: US)
  Receive Date: 20210324
  Receipt Date: 20210324
  Transmission Date: 20210420
  Serious: No
  Sender: FDA-Public Use
  Company Number: US-BAYER-2021-107406

PATIENT
  Sex: Female

DRUGS (4)
  1. ALEVE [Suspect]
     Active Substance: NAPROXEN SODIUM
     Indication: PAIN
  2. HERBAL NOS [Concomitant]
     Active Substance: HERBALS
  3. CANNABIDIOL [Concomitant]
     Active Substance: CANNABIDIOL
  4. ESSENTIAL OILS NOS [Concomitant]

REACTIONS (1)
  - Drug ineffective [Unknown]
